FAERS Safety Report 9114243 (Version 1)
Quarter: 2013Q1

REPORT INFORMATION
  Report Type: Spontaneous
  Country: US (occurrence: US)
  Receive Date: 20130208
  Receipt Date: 20130208
  Transmission Date: 20140127
  Serious: Yes (Death)
  Sender: FDA-Public Use
  Company Number: CHPA2013US002359

PATIENT
  Age: 40 Year
  Sex: Male

DRUGS (5)
  1. DIPHENHYDRAMINE [Suspect]
     Dosage: UNK
     Route: 065
  2. METHADONE [Suspect]
     Dosage: UNK
     Route: 065
  3. HEROIN [Suspect]
     Dosage: UNK
     Route: 065
  4. OXYCODONE [Suspect]
     Dosage: UNK
     Route: 065
  5. PROMETHAZINE [Suspect]
     Dosage: UNK
     Route: 065

REACTIONS (2)
  - Cardio-respiratory arrest [Fatal]
  - Intentional drug misuse [Fatal]
